FAERS Safety Report 8766892 (Version 1)
Quarter: 2012Q4

REPORT INFORMATION
  Report Type: 
  Country: US (occurrence: US)
  Receive Date: 20120904
  Receipt Date: 20120904
  Transmission Date: 20130627
  Serious: Yes (Other)
  Sender: FDA-Public Use
  Company Number: US-JNJFOC-20120812080

PATIENT
  Age: 40 Year
  Sex: Female
  Weight: 43.09 kg

DRUGS (2)
  1. INVEGA SUSTENNA [Suspect]
     Indication: SCHIZOPHRENIA, PARANOID TYPE
     Route: 030
     Dates: start: 20120817
  2. GEODON [Concomitant]
     Indication: SCHIZOPHRENIA, PARANOID TYPE
     Route: 065

REACTIONS (2)
  - Hallucination, auditory [Unknown]
  - Incorrect dose administered [Not Recovered/Not Resolved]
